FAERS Safety Report 6145657-2 (Version None)
Quarter: 2009Q2

REPORT INFORMATION
  Report Type: 
  Country: None (occurrence: None)
  Receive Date: 20090403
  Receipt Date: 20090319
  Transmission Date: 20091009
  Serious: Yes (Life-Threatening)
  Sender: FDA-Public Use
  Company Number: 8044328

PATIENT
  Age: 50 Year
  Sex: Female

DRUGS (2)
  1. KEPPRA [Suspect]
     Dosage: 1 G 2/D PO
     Route: 048
     Dates: start: 20081201, end: 20090211
  2. KEPPRA [Suspect]
     Dosage: 1 G /D PO
     Route: 048
     Dates: start: 20090212, end: 20090214

REACTIONS (4)
  - AGRANULOCYTOSIS [None]
  - CYTOLYTIC HEPATITIS [None]
  - MUCOSAL INFLAMMATION [None]
  - NEUTROPENIA [None]
